FAERS Safety Report 5319784-3 (Version None)
Quarter: 2007Q2

REPORT INFORMATION
  Report Type: 
  Country: None (occurrence: None)
  Receive Date: 20070201
  Receipt Date: 20061101
  Transmission Date: 20071010
  Serious: Yes (Other)
  Sender: FDA-Public Use
  Company Number: 2006133873

PATIENT
  Age: 83 Year
  Sex: Female

DRUGS (9)
  1. AROMASIN [Suspect]
     Indication: ANTIOESTROGEN THERAPY
     Dosage: 25 MG (25 MG, 1 IN 1 D)
     Dates: start: 20060801
  2. CORTICOSTEROID NOS (CORTICOSTEROID NOS) [Suspect]
  3. PULMICORT (BIDESONIDE) [Concomitant]
  4. FOSAMAX (ALENDRONAE SODIUM) [Concomitant]
  5. ATROVENT [Concomitant]
  6. SINGULAIR ^DIECKMANN^ (MONTELUKAST SODIUM) [Concomitant]
  7. COZAAR [Concomitant]
  8. ASPIRIN [Concomitant]
  9. HYDROCODONE (HYDROCODONE) [Concomitant]

REACTIONS (3)
  - ANOREXIA [None]
  - IMPAIRED HEALING [None]
  - WEIGHT DECREASED [None]
